FAERS Safety Report 20895826 (Version 1)
Quarter: 2022Q2

REPORT INFORMATION
  Report Type: Spontaneous
  Country: US (occurrence: None)
  Receive Date: 20220529
  Receipt Date: 20220529
  Transmission Date: 20220720
  Serious: Yes (Hospitalization)
  Sender: FDA-Public Use
  Company Number: None

PATIENT
  Age: 54 Year
  Sex: Male
  Weight: 86.85 kg

DRUGS (2)
  1. KETAMINE [Suspect]
     Active Substance: KETAMINE
     Indication: Anaesthesia
     Route: 042
     Dates: start: 20220526, end: 20220526
  2. PRECEDEX [Suspect]
     Active Substance: DEXMEDETOMIDINE HYDROCHLORIDE

REACTIONS (6)
  - Feeling abnormal [None]
  - Fear [None]
  - Vision blurred [None]
  - Movement disorder [None]
  - Confusional state [None]
  - Anxiety [None]

NARRATIVE: CASE EVENT DATE: 20220526
